FAERS Safety Report 10464271 (Version 1)
Quarter: 2014Q3

REPORT INFORMATION
  Report Type: Spontaneous
  Country: BE (occurrence: BE)
  Receive Date: 20140919
  Receipt Date: 20140919
  Transmission Date: 20150326
  Serious: Yes (Death)
  Sender: FDA-Public Use
  Company Number: BE-MYLANLABS-2014M1004683

PATIENT

DRUGS (12)
  1. METHYLPREDNISOLONE [Suspect]
     Active Substance: METHYLPREDNISOLONE
     Dosage: 32 MG/DAY
     Route: 065
  2. RIFAMPICIN [Concomitant]
     Active Substance: RIFAMPIN
     Indication: MYCOBACTERIUM AVIUM COMPLEX INFECTION
     Route: 065
  3. PYRAZINAMIDE. [Concomitant]
     Active Substance: PYRAZINAMIDE
     Indication: MYCOBACTERIUM AVIUM COMPLEX INFECTION
     Route: 065
  4. ETHAMBUTOL [Concomitant]
     Active Substance: ETHAMBUTOL HYDROCHLORIDE
     Indication: MYCOBACTERIUM AVIUM COMPLEX INFECTION
     Route: 065
  5. LAMIVUDINE. [Suspect]
     Active Substance: LAMIVUDINE
     Indication: HIV ANTIBODY POSITIVE
     Route: 065
  6. ABACAVIR [Suspect]
     Active Substance: ABACAVIR
     Indication: HIV ANTIBODY POSITIVE
     Route: 065
  7. ISONIAZID. [Concomitant]
     Active Substance: ISONIAZID
     Indication: MYCOBACTERIUM AVIUM COMPLEX INFECTION
     Route: 065
  8. CLARITHROMYCIN. [Concomitant]
     Active Substance: CLARITHROMYCIN
     Indication: MYCOBACTERIUM AVIUM COMPLEX INFECTION
     Route: 065
  9. ZIDOVUDINE. [Suspect]
     Active Substance: ZIDOVUDINE
     Indication: HIV ANTIBODY POSITIVE
     Route: 065
  10. SAQUINAVIR [Suspect]
     Active Substance: SAQUINAVIR
     Indication: HIV ANTIBODY POSITIVE
     Route: 065
  11. RITONAVIR [Suspect]
     Active Substance: RITONAVIR
     Indication: HIV ANTIBODY POSITIVE
     Route: 065
  12. METHYLPREDNISOLONE [Suspect]
     Active Substance: METHYLPREDNISOLONE
     Indication: IMMUNE RECONSTITUTION INFLAMMATORY SYNDROME
     Dosage: 48 MG/DAY FOR A MONTH, THEN 32 MG/DAY
     Route: 065

REACTIONS (11)
  - Bronchopneumonia [Fatal]
  - Bronchopulmonary aspergillosis [None]
  - Abscess jaw [None]
  - Mycobacterium avium complex infection [Fatal]
  - Progressive multifocal leukoencephalopathy [Fatal]
  - Brain oedema [None]
  - Immune reconstitution inflammatory syndrome [Fatal]
  - Cytomegalovirus infection [Fatal]
  - Pulmonary oedema [None]
  - Aspergillus infection [Fatal]
  - Kidney infection [None]
